FAERS Safety Report 23849031 (Version 1)
Quarter: 2024Q2

REPORT INFORMATION
  Report Type: Spontaneous
  Country: US (occurrence: None)
  Receive Date: 20240511
  Receipt Date: 20240511
  Transmission Date: 20240715
  Serious: Yes (Hospitalization)
  Sender: FDA-Public Use
  Company Number: None

PATIENT
  Age: 79 Year
  Sex: Male
  Weight: 78.9 kg

DRUGS (1)
  1. RISPERIDONE [Suspect]
     Active Substance: RISPERIDONE
     Indication: Schizoaffective disorder
     Dates: start: 20080507, end: 20210228

REACTIONS (10)
  - Angioedema [None]
  - Confusional state [None]
  - Hypotension [None]
  - Respiratory depression [None]
  - Sedation [None]
  - Somnolence [None]
  - Lethargy [None]
  - Drooling [None]
  - Mental status changes [None]
  - Hypoxia [None]

NARRATIVE: CASE EVENT DATE: 20210228
